FAERS Safety Report 16366708 (Version 1)
Quarter: 2019Q3

REPORT INFORMATION
  Report Type: Spontaneous
  Country: US (occurrence: US)
  Receive Date: 20190528
  Receipt Date: 20190528
  Transmission Date: 20191004
  Serious: Yes (Hospitalization)
  Sender: FDA-Public Use
  Company Number: None

PATIENT
  Age: 78 Year
  Sex: Female

DRUGS (5)
  1. TASIGNA [Suspect]
     Active Substance: NILOTINIB
     Indication: CHRONIC MYELOID LEUKAEMIA
     Route: 048
     Dates: start: 20160114
  2. ACTONEL, LATANOPROST [Concomitant]
  3. PULMICORT TURBUHALER [Concomitant]
     Active Substance: BUDESONIDE
  4. LOSARTAN POT, METOPROL SUC [Concomitant]
  5. METOPROL TAR, PROAIR HFA [Concomitant]

REACTIONS (2)
  - Nephrectomy [None]
  - Therapy cessation [None]

NARRATIVE: CASE EVENT DATE: 20190415
